FAERS Safety Report 6504434-0 (Version None)
Quarter: 2009Q4

REPORT INFORMATION
  Report Type: 
  Country: None (occurrence: None)
  Receive Date: 20091215
  Receipt Date: 20091204
  Transmission Date: 20100525
  Serious: Yes (Other)
  Sender: FDA-Public Use
  Company Number: 2009AC000486

PATIENT
  Age: 87 Year
  Sex: Female

DRUGS (26)
  1. DIGOXIN [Suspect]
     Dosage: 0.125 MG;QD; PO
     Route: 048
     Dates: start: 20080401
  2. COLACE [Concomitant]
  3. NEURONTIN [Concomitant]
  4. SPIRONOLACTONE [Concomitant]
  5. PANTOPRAZOLE SODIUM [Concomitant]
  6. LOPID [Concomitant]
  7. FUROSEMIDE [Concomitant]
  8. DETROL [Concomitant]
  9. CARDIZIEM [Concomitant]
  10. CARAFATE [Concomitant]
  11. ZOCOR [Concomitant]
  12. MULTI-VITAMINS [Concomitant]
  13. ZINC [Concomitant]
  14. ATIVAN [Concomitant]
  15. ASCORBIC ACID [Concomitant]
  16. WARFARIN [Concomitant]
  17. LORTAB [Concomitant]
  18. MAALOX [Concomitant]
  19. MYLANTA [Concomitant]
  20. DULCOLAX [Concomitant]
  21. ACETAMINOPHEN [Concomitant]
  22. GABAPENTIN [Concomitant]
  23. MAGNESIUM HYDROXIDE TAB [Concomitant]
  24. PRAVASTATIN [Concomitant]
  25. GLIMEPIRIDE [Concomitant]
  26. OXYCODONE [Concomitant]

REACTIONS (1)
  - MULTIPLE INJURIES [None]
